FAERS Safety Report 9506255 (Version 1)
Quarter: 2013Q1

REPORT INFORMATION
  Report Type: Spontaneous
  Country: US (occurrence: None)
  Receive Date: 20130301
  Receipt Date: 20130301
  Transmission Date: 20140127
  Serious: Yes (Hospitalization)
  Sender: FDA-Public Use
  Company Number: PHEH2012US006391

PATIENT
  Age: 70 Year
  Sex: Male

DRUGS (1)
  1. TEGRETOL [Suspect]
     Route: 048

REACTIONS (26)
  - Stevens-Johnson syndrome [None]
  - Hypertension [None]
  - Motion sickness [None]
  - Eye swelling [None]
  - Eye burns [None]
  - Blood glucose increased [None]
  - Hyperaesthesia [None]
  - Dizziness [None]
  - Infection [None]
  - Skin burning sensation [None]
  - Malaise [None]
  - Walking disability [None]
  - Pain of skin [None]
  - Chills [None]
  - Sleep disorder [None]
  - Swelling [None]
  - Pain in extremity [None]
  - Drug hypersensitivity [None]
  - Blister [None]
  - Rash generalised [None]
  - Urticaria [None]
  - Pain [None]
  - Pruritus [None]
  - Restlessness [None]
  - Eye pain [None]
  - Visual impairment [None]
